FAERS Safety Report 22012979 (Version 1)
Quarter: 2023Q1

REPORT INFORMATION
  Report Type: Report from Study
  Country: IN (occurrence: IN)
  Receive Date: 20230220
  Receipt Date: 20230220
  Transmission Date: 20230418
  Serious: Yes (Other)
  Sender: FDA-Public Use
  Company Number: IN-002147023-NVSC2020IN370868

PATIENT
  Age: 39 Year
  Sex: Female

DRUGS (3)
  1. ELTROMBOPAG OLAMINE [Suspect]
     Active Substance: ELTROMBOPAG OLAMINE
     Indication: Immune thrombocytopenia
     Dosage: 50 MG, QD
     Route: 065
     Dates: end: 20200303
  2. ELTROMBOPAG OLAMINE [Suspect]
     Active Substance: ELTROMBOPAG OLAMINE
     Dosage: 50 MG, OTHER (50MG + 25MG OD ON ALTERNATE DAYS)
     Route: 065
     Dates: start: 20200304
  3. ELTROMBOPAG OLAMINE [Suspect]
     Active Substance: ELTROMBOPAG OLAMINE
     Dosage: 50 MG, QD (ON MONDAY AND THURSDAY (TWICE WEEKLY))
     Route: 065
     Dates: start: 20230117

REACTIONS (4)
  - Thrombocytopenia [Not Recovered/Not Resolved]
  - Heavy menstrual bleeding [Not Recovered/Not Resolved]
  - Platelet count increased [Not Recovered/Not Resolved]
  - Anaemia [Not Recovered/Not Resolved]
